FAERS Safety Report 6940730-0 (Version None)
Quarter: 2010Q3

REPORT INFORMATION
  Report Type: 
  Country: None (occurrence: None)
  Receive Date: 20100825
  Receipt Date: 20100326
  Transmission Date: 20110219
  Serious: Yes (Death)
  Sender: FDA-Public Use
  Company Number: GB-ROCHE-722516

PATIENT

DRUGS (2)
  1. HERCEPTIN [Suspect]
     Indication: UNEVALUABLE EVENT
     Route: 065
  2. AROMATASE INHIBITOR [Concomitant]
     Indication: UNEVALUABLE EVENT

REACTIONS (1)
  - ILL-DEFINED DISORDER [None]
